FAERS Safety Report 21702412 (Version 1)
Quarter: 2022Q4

REPORT INFORMATION
  Report Type: Spontaneous
  Country: US (occurrence: US)
  Receive Date: 20221208
  Receipt Date: 20221208
  Transmission Date: 20230113
  Serious: Yes (Other)
  Sender: FDA-Public Use
  Company Number: US-SANOFI-01396013

PATIENT
  Sex: Female

DRUGS (10)
  1. DUPIXENT [Suspect]
     Active Substance: DUPILUMAB
     Indication: Eczema
     Dosage: 300 MG, QOW
     Dates: start: 202211
  2. BIKTARVY [Concomitant]
     Active Substance: BICTEGRAVIR SODIUM\EMTRICITABINE\TENOFOVIR ALAFENAMIDE FUMARATE
  3. AMBIEN [Concomitant]
     Active Substance: ZOLPIDEM TARTRATE
     Indication: Sleep disorder
  4. WELLBUTRIN [Concomitant]
     Active Substance: BUPROPION HYDROCHLORIDE
  5. SINGULAIR [Concomitant]
     Active Substance: MONTELUKAST SODIUM
  6. SPIRIVA [Concomitant]
     Active Substance: TIOTROPIUM BROMIDE MONOHYDRATE
  7. VENTOLIN [Concomitant]
     Active Substance: ALBUTEROL SULFATE
  8. HUMIRA [Concomitant]
     Active Substance: ADALIMUMAB
  9. DIAZEPAM [Concomitant]
     Active Substance: DIAZEPAM
  10. VITAMINS NOS [Concomitant]
     Active Substance: VITAMINS

REACTIONS (5)
  - Lung neoplasm malignant [Not Recovered/Not Resolved]
  - Dizziness [Unknown]
  - HIV test positive [Unknown]
  - Asthma [Unknown]
  - Surgery [Unknown]
